FAERS Safety Report 4509020-X (Version None)
Quarter: 2004Q4

REPORT INFORMATION
  Report Type: 
  Country: None (occurrence: None)
  Receive Date: 20041122
  Receipt Date: 20041122
  Transmission Date: 20050328
  Serious: Yes (Life-Threatening)
  Sender: FDA-Public Use
  Company Number: None

PATIENT
  Age: 97 Year
  Sex: Female
  Weight: 47.6277 kg

DRUGS (1)
  1. BEXTRA [Suspect]
     Dates: start: 20041001, end: 20041004

REACTIONS (1)
  - SOMNOLENCE [None]
